FAERS Safety Report 20895548 (Version 1)
Quarter: 2022Q2

REPORT INFORMATION
  Report Type: Spontaneous
  Country: GB (occurrence: None)
  Receive Date: 20220529
  Receipt Date: 20220529
  Transmission Date: 20220721
  Serious: Yes (unspecified)
  Sender: FDA-Public Use
  Company Number: None

PATIENT
  Age: 79 Year
  Sex: Male
  Weight: 63 kg

DRUGS (1)
  1. OPICAPONE [Suspect]
     Active Substance: OPICAPONE
     Indication: Parkinson^s disease
     Dosage: FREQUENCY : DAILY;?
     Route: 048
     Dates: start: 20220522, end: 20220528

REACTIONS (6)
  - Hallucination [None]
  - Confusional state [None]
  - Insomnia [None]
  - Dyskinesia [None]
  - Fall [None]
  - Hip fracture [None]

NARRATIVE: CASE EVENT DATE: 20220522
